FAERS Safety Report 6992346-8 (Version None)
Quarter: 2010Q3

REPORT INFORMATION
  Report Type: 
  Country: None (occurrence: None)
  Receive Date: 20100917
  Receipt Date: 20100909
  Transmission Date: 20110219
  Serious: Yes (Other)
  Sender: FDA-Public Use
  Company Number: US-BAYER-201033447NA

PATIENT
  Age: 28 Year
  Sex: Female

DRUGS (1)
  1. AVELOX [Suspect]
     Indication: PRODUCT USED FOR UNKNOWN INDICATION
     Dosage: UNIT DOSE: 400 MG
     Route: 048
     Dates: start: 20100903, end: 20100904

REACTIONS (3)
  - HYPERSENSITIVITY [None]
  - PHARYNGEAL OEDEMA [None]
  - RASH [None]
